FAERS Safety Report 19584688 (Version 1)
Quarter: 2021Q3

REPORT INFORMATION
  Report Type: Spontaneous
  Country: US (occurrence: US)
  Receive Date: 20210720
  Receipt Date: 20210720
  Transmission Date: 20211014
  Serious: No
  Sender: FDA-Public Use
  Company Number: US-ASTRAZENECA-2021A582213

PATIENT
  Age: 30506 Day
  Sex: Female
  Weight: 53 kg

DRUGS (5)
  1. IMFINZI [Suspect]
     Active Substance: DURVALUMAB
     Indication: NON-SMALL CELL LUNG CANCER
     Dosage: 1500 MG FOR THE FIRST MONTH AND 500 MG EVERY 2 WEEKS THEREAFTER
     Route: 042
     Dates: start: 20210510, end: 20210607
  2. TYLENOL [Concomitant]
     Active Substance: ACETAMINOPHEN
     Indication: CHILLS
  3. PREDNISONE. [Concomitant]
     Active Substance: PREDNISONE
     Dosage: 30MG X 3 DAYS, 20MG X 3 DAYS, AND THE 10MG,
  4. TYLENOL [Concomitant]
     Active Substance: ACETAMINOPHEN
     Indication: PYREXIA
  5. PREDNISONE. [Concomitant]
     Active Substance: PREDNISONE
     Dosage: 20MG 5 X DAYS, 15MG X 5 DAYS AND THEN 10MG

REACTIONS (14)
  - Oropharyngeal discomfort [Unknown]
  - Cough [Recovering/Resolving]
  - Influenza like illness [Unknown]
  - Decreased appetite [Unknown]
  - Thirst [Unknown]
  - Night sweats [Not Recovered/Not Resolved]
  - Pyrexia [Not Recovered/Not Resolved]
  - Nausea [Recovered/Resolved]
  - Chills [Not Recovered/Not Resolved]
  - Pollakiuria [Not Recovered/Not Resolved]
  - Blood pressure decreased [Unknown]
  - Dyspnoea [Not Recovered/Not Resolved]
  - Fatigue [Unknown]
  - Presyncope [Unknown]

NARRATIVE: CASE EVENT DATE: 20210510
